FAERS Safety Report 12144391 (Version 1)
Quarter: 2016Q1

REPORT INFORMATION
  Report Type: Spontaneous
  Country: US (occurrence: US)
  Receive Date: 20160304
  Receipt Date: 20160304
  Transmission Date: 20160526
  Serious: No
  Sender: FDA-Public Use
  Company Number: US-PFIZER INC-2016104973

PATIENT
  Age: 59 Year
  Sex: Female
  Weight: 58.6 kg

DRUGS (1)
  1. LYRICA [Suspect]
     Active Substance: PREGABALIN
     Dosage: UNK

REACTIONS (4)
  - Groin pain [Unknown]
  - Burning sensation [Unknown]
  - Pain [Unknown]
  - Pain in extremity [Unknown]
